FAERS Safety Report 10389159 (Version 1)
Quarter: 2014Q3

REPORT INFORMATION
  Report Type: Spontaneous
  Country: MX (occurrence: MX)
  Receive Date: 20140817
  Receipt Date: 20140817
  Transmission Date: 20150326
  Serious: Yes (Other)
  Sender: FDA-Public Use
  Company Number: MX-009507513-1408MEX006748

PATIENT
  Age: 51 Year
  Sex: Female

DRUGS (2)
  1. PEGINTRON [Suspect]
     Active Substance: PEGINTERFERON ALFA-2B
     Indication: HEPATITIS C
     Dosage: 0.5ML (AT THE BEGINNING OF THE TREATMENT)
     Route: 058
     Dates: end: 2014
  2. PEGINTRON [Suspect]
     Active Substance: PEGINTERFERON ALFA-2B
     Dosage: 0.3 ML, UNK
     Route: 058
     Dates: start: 201405

REACTIONS (5)
  - Product quality issue [Unknown]
  - Inappropriate schedule of drug administration [Unknown]
  - Platelet count decreased [Unknown]
  - Intestinal fistula repair [Unknown]
  - Anal fistula [Unknown]

NARRATIVE: CASE EVENT DATE: 201405
